FAERS Safety Report 26060986 (Version 1)
Quarter: 2025Q4

REPORT INFORMATION
  Report Type: Spontaneous
  Country: EU (occurrence: EU)
  Receive Date: 20251118
  Receipt Date: 20251118
  Transmission Date: 20260117
  Serious: Yes (Hospitalization)
  Sender: MYLAN
  Company Number: None

PATIENT
  Age: 32 Year
  Sex: Male

DRUGS (28)
  1. CLOZAPINE [Suspect]
     Active Substance: CLOZAPINE
     Indication: Impulse-control disorder
     Dosage: 300 MILLIGRAM, QD
     Dates: start: 20250920, end: 20251013
  2. CLOZAPINE [Suspect]
     Active Substance: CLOZAPINE
     Indication: Aggression
     Dosage: 300 MILLIGRAM, QD
     Route: 048
     Dates: start: 20250920, end: 20251013
  3. CLOZAPINE [Suspect]
     Active Substance: CLOZAPINE
     Dosage: 300 MILLIGRAM, QD
     Route: 048
     Dates: start: 20250920, end: 20251013
  4. CLOZAPINE [Suspect]
     Active Substance: CLOZAPINE
     Dosage: 300 MILLIGRAM, QD
     Dates: start: 20250920, end: 20251013
  5. VALPROIC ACID [Concomitant]
     Active Substance: VALPROIC ACID
     Dosage: 2 GRAM, QD (1+3)
  6. VALPROIC ACID [Concomitant]
     Active Substance: VALPROIC ACID
     Dosage: 2 GRAM, QD (1+3)
     Route: 048
  7. VALPROIC ACID [Concomitant]
     Active Substance: VALPROIC ACID
     Dosage: 2 GRAM, QD (1+3)
     Route: 048
  8. VALPROIC ACID [Concomitant]
     Active Substance: VALPROIC ACID
     Dosage: 2 GRAM, QD (1+3)
  9. QUETIAPINE FUMARATE [Concomitant]
     Active Substance: QUETIAPINE FUMARATE
     Dosage: 300 MILLIGRAM, BID (12 HR, 1+1)
  10. QUETIAPINE FUMARATE [Concomitant]
     Active Substance: QUETIAPINE FUMARATE
     Dosage: 300 MILLIGRAM, BID (12 HR, 1+1)
     Route: 048
  11. QUETIAPINE FUMARATE [Concomitant]
     Active Substance: QUETIAPINE FUMARATE
     Dosage: 300 MILLIGRAM, BID (12 HR, 1+1)
     Route: 048
  12. QUETIAPINE FUMARATE [Concomitant]
     Active Substance: QUETIAPINE FUMARATE
     Dosage: 300 MILLIGRAM, BID (12 HR, 1+1)
  13. LITHIUM CARBONATE [Concomitant]
     Active Substance: LITHIUM CARBONATE
     Dosage: 1050 MILLIGRAM, QD (1,5+2)
  14. LITHIUM CARBONATE [Concomitant]
     Active Substance: LITHIUM CARBONATE
     Dosage: 1050 MILLIGRAM, QD (1,5+2)
     Route: 048
  15. LITHIUM CARBONATE [Concomitant]
     Active Substance: LITHIUM CARBONATE
     Dosage: 1050 MILLIGRAM, QD (1,5+2)
     Route: 048
  16. LITHIUM CARBONATE [Concomitant]
     Active Substance: LITHIUM CARBONATE
     Dosage: 1050 MILLIGRAM, QD (1,5+2)
  17. ABILIFY MAINTENA [Concomitant]
     Active Substance: ARIPIPRAZOLE
     Dosage: EO
  18. ABILIFY MAINTENA [Concomitant]
     Active Substance: ARIPIPRAZOLE
     Dosage: EO
     Route: 030
  19. ABILIFY MAINTENA [Concomitant]
     Active Substance: ARIPIPRAZOLE
     Dosage: EO
     Route: 030
  20. ABILIFY MAINTENA [Concomitant]
     Active Substance: ARIPIPRAZOLE
     Dosage: EO
  21. Tenox [Concomitant]
     Dosage: 20 MILLIGRAM, QD (1X1)
  22. Tenox [Concomitant]
     Dosage: 20 MILLIGRAM, QD (1X1)
     Route: 065
  23. Tenox [Concomitant]
     Dosage: 20 MILLIGRAM, QD (1X1)
     Route: 065
  24. Tenox [Concomitant]
     Dosage: 20 MILLIGRAM, QD (1X1)
  25. MELATONIN [Concomitant]
     Active Substance: MELATONIN
     Dosage: 6 MILLIGRAM, QD (0+2)
  26. MELATONIN [Concomitant]
     Active Substance: MELATONIN
     Dosage: 6 MILLIGRAM, QD (0+2)
     Route: 048
  27. MELATONIN [Concomitant]
     Active Substance: MELATONIN
     Dosage: 6 MILLIGRAM, QD (0+2)
     Route: 048
  28. MELATONIN [Concomitant]
     Active Substance: MELATONIN
     Dosage: 6 MILLIGRAM, QD (0+2)

REACTIONS (8)
  - Duodenitis [Recovering/Resolving]
  - Coagulopathy [Recovering/Resolving]
  - C-reactive protein increased [Recovering/Resolving]
  - Inflammation [Recovering/Resolving]
  - Pyrexia [Recovering/Resolving]
  - White blood cell count increased [Recovering/Resolving]
  - Hepatic enzyme increased [Recovering/Resolving]
  - Off label use [Recovering/Resolving]

NARRATIVE: CASE EVENT DATE: 20251001
